FAERS Safety Report 9258681 (Version 1)
Quarter: 2013Q2

REPORT INFORMATION
  Report Type: Spontaneous
  Country: US (occurrence: None)
  Receive Date: 20130425
  Receipt Date: 20130425
  Transmission Date: 20140414
  Serious: Yes (Hospitalization)
  Sender: FDA-Public Use
  Company Number: None

PATIENT
  Age: 77 Year
  Sex: Female
  Weight: 44 kg

DRUGS (6)
  1. FLUOXETINE [Suspect]
     Indication: DEPRESSION
     Dosage: APPROXIMATELY 1 WEEK
     Route: 048
  2. AMLODIPINE [Concomitant]
  3. CHOLECALCIFEROL [Concomitant]
  4. FLUTICASONE/SALMETEROL [Concomitant]
  5. LEVOTHYROXINE [Concomitant]
  6. LOVASTATIN [Concomitant]

REACTIONS (3)
  - Dyspnoea [None]
  - Chronic obstructive pulmonary disease [None]
  - Hyponatraemia [None]
